FAERS Safety Report 8366975-3 (Version None)
Quarter: 2012Q2

REPORT INFORMATION
  Report Type: 
  Country: None (occurrence: None)
  Receive Date: 20120517
  Receipt Date: 20120508
  Transmission Date: 20120825
  Serious: Yes (Other)
  Sender: FDA-Public Use
  Company Number: PHHY2012BR031357

PATIENT
  Sex: Female

DRUGS (13)
  1. LIPITOR [Concomitant]
     Indication: BLOOD CHOLESTEROL INCREASED
  2. CIPROFIBRATE [Concomitant]
     Indication: BLOOD TRIGLYCERIDES
  3. CLONIDINE HYDROCHLORIDE [Concomitant]
  4. CEFAMOX [Concomitant]
  5. RASILEZ AMLO [Suspect]
     Indication: HYPERTENSION
     Dosage: 1 DF, DAILY
  6. HYDROXYCHLOROQUINE SULFATE [Concomitant]
     Indication: MUSCULOSKELETAL PAIN
  7. PYLORIPAC [Concomitant]
     Indication: ULCER
  8. ADALAT [Concomitant]
     Indication: HYPERTENSION
  9. CEFALIUM [Concomitant]
     Indication: MIGRAINE
  10. LEVOTHYROXINE SODIUM [Concomitant]
     Indication: HYPERTHYROIDISM
     Dosage: UNK
  11. CELEBREX [Concomitant]
  12. NEXIUM [Concomitant]
     Indication: GASTRITIS
  13. METHOTREXATE [Concomitant]
     Indication: BONE DISORDER
     Dosage: 3 DF, QW

REACTIONS (6)
  - GASTRIC ULCER [None]
  - GASTROOESOPHAGEAL REFLUX DISEASE [None]
  - HAEMORRHAGE [None]
  - ERYTHEMA [None]
  - OEDEMA PERIPHERAL [None]
  - LIMB INJURY [None]
